FAERS Safety Report 4684140-8 (Version None)
Quarter: 2005Q2

REPORT INFORMATION
  Report Type: 
  Country: None (occurrence: None)
  Receive Date: 20050607
  Receipt Date: 20020916
  Transmission Date: 20051028
  Serious: Yes (Hospitalization)
  Sender: FDA-Public Use
  Company Number: JP-GLAXOSMITHKLINE-A0380972A

PATIENT
  Age: 30 Year
  Sex: Male

DRUGS (6)
  1. NAVELBINE [Suspect]
     Dosage: 31.9MG PER DAY
     Route: 042
     Dates: start: 20020416
  2. CISPLATIN [Suspect]
     Dosage: 127.7MG PER DAY
     Route: 065
     Dates: start: 20020416
  3. MS CONTIN [Concomitant]
     Dates: start: 20020518, end: 20020625
  4. KYTRIL [Concomitant]
     Dates: start: 20020416, end: 20020520
  5. DECADRON [Concomitant]
     Dates: start: 20020416, end: 20020522
  6. GASTER D [Concomitant]
     Dates: start: 20020415, end: 20020625

REACTIONS (5)
  - DIARRHOEA [None]
  - ENTEROCOLITIS [None]
  - OEDEMA MUCOSAL [None]
  - VOMITING [None]
  - WHITE BLOOD CELL COUNT DECREASED [None]
